FAERS Safety Report 6719729-5 (Version None)
Quarter: 2010Q2

REPORT INFORMATION
  Report Type: 
  Country: None (occurrence: None)
  Receive Date: 20100511
  Receipt Date: 20100428
  Transmission Date: 20101027
  Serious: Yes (Hospitalization, Other)
  Sender: FDA-Public Use
  Company Number: PHHY2010DE27970

PATIENT
  Sex: Male
  Weight: 83 kg

DRUGS (12)
  1. ALISKIREN ALI+ [Suspect]
     Indication: HYPERTENSION
     Dosage: 300 MG, PER DAY
     Route: 048
     Dates: start: 20081117
  2. FLUVASTATIN SODIUM [Suspect]
     Dosage: 80 MG, PER DAY
     Dates: start: 20060620
  3. MIRTAZAPINE [Concomitant]
     Indication: RESTLESSNESS
     Dosage: 5
     Route: 048
     Dates: start: 20090820, end: 20090828
  4. TORASEMIDE [Concomitant]
     Dosage: 15 UNK, UNK
     Route: 048
     Dates: start: 20070827
  5. METOPROLOL SUCCINATE [Concomitant]
     Dosage: 142.5 UNK, UNK
     Route: 048
     Dates: start: 20081027
  6. MOXONIDINE [Concomitant]
     Dosage: 0.3 UNK, UNK
     Route: 048
     Dates: start: 20081027
  7. PANTOPRAZOLE [Concomitant]
     Dosage: 40 UNK, UNK
     Route: 048
     Dates: start: 20090820, end: 20090825
  8. ASPIRIN [Concomitant]
     Dosage: 100 UNK, UNK
     Route: 048
     Dates: start: 19960101
  9. PENTAERYTHRITOL TETRANITRATE [Concomitant]
     Dosage: UNK
     Route: 048
     Dates: start: 20081027
  10. ALLOPURINOL [Concomitant]
     Dosage: 150 UNK, UNK
     Route: 048
     Dates: start: 20070827
  11. RAMIPRIL [Concomitant]
     Dosage: 5 UNK, UNK
     Route: 048
     Dates: start: 20070827
  12. AMLODIPIN ^ORIFARM^ [Concomitant]
     Dosage: 10 UNK, UNK
     Route: 048
     Dates: start: 20070727

REACTIONS (9)
  - BLOOD CREATININE INCREASED [None]
  - BLOOD POTASSIUM INCREASED [None]
  - C-REACTIVE PROTEIN INCREASED [None]
  - DRUG INEFFECTIVE [None]
  - DYSPNOEA [None]
  - HAEMOGLOBIN DECREASED [None]
  - HYPERLIPIDAEMIA [None]
  - HYPERTENSIVE CRISIS [None]
  - LEFT VENTRICULAR HYPERTROPHY [None]
